FAERS Safety Report 4523070-9 (Version None)
Quarter: 2004Q4

REPORT INFORMATION
  Report Type: 
  Country: None (occurrence: None)
  Receive Date: 20041207
  Receipt Date: 20041207
  Transmission Date: 20050328
  Serious: Yes (Life-Threatening)
  Sender: FDA-Public Use
  Company Number: None

PATIENT
  Sex: Female
  Weight: 59.8748 kg

DRUGS (1)
  1. CYCLOPHOSPHAMIDE [Suspect]
     Indication: MULTIPLE SCLEROSIS
     Dosage: 50MG/KG = 3090 MG IV QD X 4
     Route: 042
     Dates: start: 20041103, end: 20041106

REACTIONS (1)
  - CARDIOMYOPATHY [None]
